FAERS Safety Report 24977455 (Version 1)
Quarter: 2025Q1

REPORT INFORMATION
  Report Type: Report from Study
  Country: US (occurrence: None)
  Receive Date: 20250217
  Receipt Date: 20250217
  Transmission Date: 20250409
  Serious: No
  Sender: ALEXION PHARMACEUTICALS
  Company Number: US-AstraZeneca-2013SE15199

PATIENT
  Age: 66 Year

DRUGS (1)
  1. NEXIUM [Suspect]
     Active Substance: ESOMEPRAZOLE MAGNESIUM
     Indication: Dyspepsia

REACTIONS (5)
  - Dyspepsia [Unknown]
  - Feeding disorder [Unknown]
  - Hypoacusis [Unknown]
  - Insomnia [Unknown]
  - Product dose omission issue [Unknown]
